FAERS Safety Report 17101718 (Version 1)
Quarter: 2019Q4

REPORT INFORMATION
  Report Type: Spontaneous
  Country: JP (occurrence: JP)
  Receive Date: 20191202
  Receipt Date: 20191202
  Transmission Date: 20200122
  Serious: Yes (Death, Life-Threatening, Hospitalization, Other)
  Sender: FDA-Public Use
  Company Number: JP-OTSUKA-000666

PATIENT
  Age: 56 Year
  Sex: Male

DRUGS (8)
  1. BUSULFEX [Suspect]
     Active Substance: BUSULFAN
     Indication: STEM CELL TRANSPLANT
     Dosage: 20.1 ML, DAILY DOSE
     Route: 042
     Dates: start: 20070322, end: 20070322
  2. VALPROATE SODIUM. [Concomitant]
     Active Substance: VALPROATE SODIUM
     Indication: PRODUCT USED FOR UNKNOWN INDICATION
     Dosage: UNK
     Route: 065
     Dates: start: 20070321, end: 20070326
  3. LENOGRASTIM [Concomitant]
     Active Substance: LENOGRASTIM
     Dosage: UNK
     Route: 065
     Dates: start: 20070418, end: 20070420
  4. BUSULFEX [Suspect]
     Active Substance: BUSULFAN
     Dosage: 26.8 ML, DAILY DOSE
     Route: 042
     Dates: start: 20070323, end: 20070325
  5. LENOGRASTIM [Concomitant]
     Active Substance: LENOGRASTIM
     Indication: PRODUCT USED FOR UNKNOWN INDICATION
     Dosage: UNK
     Route: 065
     Dates: start: 20070330, end: 20070417
  6. CYCLOPHOSPHAMIDE. [Suspect]
     Active Substance: CYCLOPHOSPHAMIDE
     Indication: PRODUCT USED FOR UNKNOWN INDICATION
     Dosage: 2800 MG, QD
     Route: 042
     Dates: start: 20070326, end: 20070327
  7. BUSULFEX [Suspect]
     Active Substance: BUSULFAN
     Dosage: 6.7 ML, DAILY DOSE
     Route: 042
     Dates: start: 20070326, end: 20070326
  8. TACROLIMUS MONOHYDRATE [Concomitant]
     Active Substance: TACROLIMUS
     Indication: PRODUCT USED FOR UNKNOWN INDICATION
     Dosage: UNK
     Route: 065

REACTIONS (13)
  - Gamma-glutamyltransferase increased [Recovered/Resolved]
  - Blood bilirubin increased [Recovered/Resolved]
  - Sepsis [Unknown]
  - Nausea [Recovered/Resolved]
  - Blood urea increased [Not Recovered/Not Resolved]
  - Blood sodium increased [Unknown]
  - Decreased appetite [Unknown]
  - Diarrhoea [Unknown]
  - Vomiting [Recovered/Resolved]
  - Human herpesvirus 6 encephalitis [Fatal]
  - Malaise [Recovered/Resolved]
  - Blood potassium increased [Unknown]
  - Blood chloride increased [Unknown]

NARRATIVE: CASE EVENT DATE: 20070325
